FAERS Safety Report 9644350 (Version 2)
Quarter: 2013Q4

REPORT INFORMATION
  Report Type: Spontaneous
  Country: US (occurrence: US)
  Receive Date: 20131025
  Receipt Date: 20131107
  Transmission Date: 20140711
  Serious: Yes (Hospitalization)
  Sender: FDA-Public Use
  Company Number: US-BIOGENIDEC-2013BI102889

PATIENT
  Age: 73 Year
  Sex: Male

DRUGS (10)
  1. AVONEX [Suspect]
     Indication: MULTIPLE SCLEROSIS
     Route: 030
     Dates: start: 20110308
  2. ALLOPURINOL [Concomitant]
  3. ASPIRIN [Concomitant]
  4. CALCIUM 600 [Concomitant]
  5. FERROUS SULFATE [Concomitant]
  6. NABUMETONE [Concomitant]
  7. PRILOSEC [Concomitant]
  8. THEOPHYLLINE CR [Concomitant]
  9. ZANTAC 75 [Concomitant]
  10. ZONISAMIDE [Concomitant]

REACTIONS (1)
  - Brain neoplasm [Unknown]
